FAERS Safety Report 10393705 (Version 1)
Quarter: 2014Q3

REPORT INFORMATION
  Report Type: Spontaneous
  Country: BR (occurrence: BR)
  Receive Date: 20140819
  Receipt Date: 20140819
  Transmission Date: 20150326
  Serious: Yes (Other)
  Sender: FDA-Public Use
  Company Number: PHHY2014BR101059

PATIENT
  Age: 42 Year
  Sex: Female

DRUGS (3)
  1. ISOMETHEPTENE [Suspect]
     Active Substance: ISOMETHEPTENE
     Dosage: 0.75 G, UNK
  2. METAMIZOLE [Suspect]
     Active Substance: METAMIZOLE
     Dosage: 4.5 G, UNK
  3. CAFFEINE. [Suspect]
     Active Substance: CAFFEINE
     Dosage: 0.45 G, UNK

REACTIONS (7)
  - Hemiparesis [Recovered/Resolved]
  - Cerebral vasoconstriction [Recovered/Resolved]
  - Haemorrhage [Recovered/Resolved]
  - Drug abuse [Recovered/Resolved]
  - Dysarthria [Recovered/Resolved]
  - Vasospasm [Recovered/Resolved]
  - Haematoma [Recovered/Resolved]
